FAERS Safety Report 7684514 (Version 2)
Quarter: 2017Q1

REPORT INFORMATION
  Report Type: Spontaneous
  Country: US (occurrence: US)
  Receive Date: 20101129
  Receipt Date: 20170226
  Transmission Date: 20170429
  Serious: Yes (Hospitalization, Other)
  Sender: FDA-Public Use
  Company Number: US-AMGEN-USASP2010001511

PATIENT
  Age: 64 Year
  Sex: Female

DRUGS (2)
  1. ENBREL [Suspect]
     Active Substance: ETANERCEPT
     Indication: OSTEOARTHRITIS
  2. ENBREL [Suspect]
     Active Substance: ETANERCEPT
     Indication: PSORIATIC ARTHROPATHY
     Dosage: 50 MG, QWK
     Route: 065
     Dates: start: 19990101, end: 201008

REACTIONS (13)
  - Vomiting [Unknown]
  - Psoriatic arthropathy [Not Recovered/Not Resolved]
  - Haemorrhage [Recovered/Resolved]
  - Dehydration [Recovered/Resolved]
  - Cellulitis [Recovered/Resolved]
  - Weight decreased [Unknown]
  - Diarrhoea [Unknown]
  - Diabetes mellitus inadequate control [Not Recovered/Not Resolved]
  - Anaemia [Recovered/Resolved]
  - Off label use [Unknown]
  - Renal failure [Recovered/Resolved]
  - Joint destruction [Recovered/Resolved]
  - Decreased appetite [Unknown]

NARRATIVE: CASE EVENT DATE: 201009
